FAERS Safety Report 9266443 (Version 1)
Quarter: 2013Q2

REPORT INFORMATION
  Report Type: Report from Study
  Country: SE (occurrence: SE)
  Receive Date: 20130502
  Receipt Date: 20130502
  Transmission Date: 20140414
  Serious: Yes (Other)
  Sender: FDA-Public Use
  Company Number: SE-ROCHE-1220029

PATIENT
  Age: 72 Year
  Sex: Female
  Weight: 90 kg

DRUGS (8)
  1. TOCILIZUMAB [Suspect]
     Indication: RHEUMATOID ARTHRITIS
     Route: 042
     Dates: start: 20130327, end: 20130430
  2. PNEUMOVAX [Suspect]
     Indication: RHEUMATOID ARTHRITIS
     Route: 065
     Dates: start: 20130327
  3. CALCICHEW D3 [Concomitant]
     Indication: OSTEOPOROSIS
     Dosage: 1X2
     Route: 048
  4. PREDNISOLONE [Concomitant]
     Indication: RHEUMATOID ARTHRITIS
     Route: 048
  5. LEVAXIN [Concomitant]
     Route: 048
  6. OMEPRAZOLE [Concomitant]
     Indication: ABDOMINAL PAIN UPPER
     Route: 048
  7. PARACETAMOL [Concomitant]
     Indication: PAIN
     Route: 048
  8. FURIX [Concomitant]
     Route: 065

REACTIONS (1)
  - Vaccination site necrosis [Not Recovered/Not Resolved]
